FAERS Safety Report 7515113-5 (Version None)
Quarter: 2011Q2

REPORT INFORMATION
  Report Type: 
  Country: None (occurrence: None)
  Receive Date: 20110601
  Receipt Date: 20110524
  Transmission Date: 20111010
  Serious: Yes (Death)
  Sender: FDA-Public Use
  Company Number: US-BAXTER-2011BH017188

PATIENT
  Age: 45 Year
  Sex: Female

DRUGS (2)
  1. GAMMAGARD S/D [Suspect]
     Indication: PRODUCT USED FOR UNKNOWN INDICATION
     Route: 042
     Dates: start: 20091201, end: 20091201
  2. GAMMAGARD S/D [Suspect]

REACTIONS (1)
  - DEATH [None]
